FAERS Safety Report 14843023 (Version 1)
Quarter: 2018Q2

REPORT INFORMATION
  Report Type: Spontaneous
  Country: US (occurrence: US)
  Receive Date: 20180419
  Receipt Date: 20180419
  Transmission Date: 20180711
  Serious: Yes (Other)
  Sender: FDA-Public Use
  Company Number: None

PATIENT
  Age: 54 Year
  Sex: Female
  Weight: 84.15 kg

DRUGS (3)
  1. OCREVUS [Suspect]
     Active Substance: OCRELIZUMAB
     Indication: MULTIPLE SCLEROSIS
     Dosage: 300 MG INTRAVENOUS DRIP DAY 0 AND DAY 15?
     Route: 041
     Dates: start: 20171102, end: 20171116
  2. METHYLPREDNISOLONE 250MG [Concomitant]
     Dates: start: 20171102, end: 20171116
  3. ADDERALL 20MG [Concomitant]
     Dates: start: 20111122

REACTIONS (3)
  - Chest pain [None]
  - Bronchitis chronic [None]
  - Dyspnoea [None]

NARRATIVE: CASE EVENT DATE: 20171201
